FAERS Safety Report 10474439 (Version 3)
Quarter: 2014Q4

REPORT INFORMATION
  Report Type: Spontaneous
  Country: US (occurrence: US)
  Receive Date: 20140924
  Receipt Date: 20141008
  Transmission Date: 20150528
  Serious: No
  Sender: FDA-Public Use
  Company Number: US-GILEAD-2014-0116129

PATIENT
  Age: 68 Year
  Sex: Female

DRUGS (1)
  1. LETAIRIS [Suspect]
     Active Substance: AMBRISENTAN
     Indication: PRODUCT USED FOR UNKNOWN INDICATION
     Dosage: 5 MG, QD
     Route: 065
     Dates: start: 20140903, end: 20140917

REACTIONS (8)
  - Gait disturbance [Unknown]
  - Blister [Unknown]
  - Peripheral swelling [Unknown]
  - Fluid retention [Unknown]
  - Unevaluable event [Unknown]
  - Epistaxis [Unknown]
  - Weight increased [Unknown]
  - Oxygen supplementation [Unknown]
